FAERS Safety Report 8894090 (Version 5)
Quarter: 2013Q1

REPORT INFORMATION
  Report Type: Report from Study
  Country: US (occurrence: US)
  Receive Date: 20121108
  Receipt Date: 20130118
  Transmission Date: 20140127
  Serious: Yes (Hospitalization, Other)
  Sender: FDA-Public Use
  Company Number: US-GENZYME-MOZO-1000765

PATIENT
  Age: 74 Year
  Sex: Male
  Weight: 72.9 kg

DRUGS (50)
  1. MOZOBIL [Suspect]
     Indication: ACUTE MYELOID LEUKAEMIA
     Dosage: 18 MG = 0.9 ML, CYCLE 1
     Route: 058
     Dates: start: 20120813, end: 20120813
  2. MOZOBIL [Suspect]
     Dosage: 18 MG = 0.9 ML, CYCLE 1
     Route: 058
     Dates: start: 20120815, end: 20120815
  3. MOZOBIL [Suspect]
     Dosage: 18 MG = 0.9 ML, CYCLE 1
     Route: 058
     Dates: start: 20120817, end: 20120817
  4. MOZOBIL [Suspect]
     Dosage: 18 MG = 0.9 ML, CYCLE 1
     Route: 058
     Dates: start: 20120819, end: 20120819
  5. MOZOBIL [Suspect]
     Dosage: 18 MG = 0.9 ML, CYCLE 1
     Route: 058
     Dates: start: 20120821, end: 20120821
  6. MOZOBIL [Suspect]
     Dosage: 18 MG = 0.9 ML, CYCLE 1
     Route: 058
     Dates: start: 20120823, end: 20120823
  7. MOZOBIL [Suspect]
     Dosage: 18 MG = 0.9 ML, CYCLE 1
     Route: 058
     Dates: start: 20120825, end: 20120825
  8. MOZOBIL [Suspect]
     Dosage: 18000 MCQ, CYCLE 2
     Route: 058
     Dates: start: 20120912, end: 20120912
  9. MOZOBIL [Suspect]
     Dosage: 18000 MCQ, CYCLE 2
     Route: 058
     Dates: start: 20120914, end: 20120914
  10. MOZOBIL [Suspect]
     Dosage: 18000 MCQ, CYCLE 2
     Route: 058
     Dates: start: 20120916, end: 20120916
  11. MOZOBIL [Suspect]
     Dosage: 18000 MCQ, CYCLE 2
     Route: 058
     Dates: start: 20120918, end: 20120918
  12. MOZOBIL [Suspect]
     Dosage: 18000 MCQ, CYCLE 2
     Route: 058
     Dates: start: 20120920, end: 20120920
  13. MOZOBIL [Suspect]
     Dosage: 18000 MCQ, CYCLE 2
     Route: 058
     Dates: start: 20120922, end: 20120922
  14. MOZOBIL [Suspect]
     Dosage: 18000 MCQ, CYCLE 2
     Route: 058
     Dates: start: 20120924, end: 20120924
  15. MOZOBIL [Suspect]
     Dosage: 17520 MCQ, CYCLE 3
     Route: 058
     Dates: start: 20121011, end: 20121011
  16. MOZOBIL [Suspect]
     Dosage: 17520 MCQ, CYCLE 3
     Route: 058
     Dates: start: 20121013, end: 20121013
  17. MOZOBIL [Suspect]
     Dosage: 17520 MCQ, CYCLE 3
     Route: 058
     Dates: start: 20121015, end: 20121015
  18. MOZOBIL [Suspect]
     Dosage: 17520 MCQ, CYCLE 3
     Route: 058
     Dates: start: 20121017, end: 20121017
  19. MOZOBIL [Suspect]
     Dosage: 17520 MCQ, CYCLE 3
     Route: 058
     Dates: start: 20121019, end: 20121019
  20. SORAFENIB [Suspect]
     Indication: ACUTE MYELOID LEUKAEMIA
     Dosage: 800 MG, BID, ON DAYS 1-28 WITHOUT MISSING ANY DOSES (CYCLE 1)
     Route: 065
     Dates: start: 20120813, end: 20120909
  21. SORAFENIB [Suspect]
     Dosage: 800 MG, BID, ON DAYS 1-28 WITHOUT MISSING ANY DOSES (CYCLE 2)
     Route: 065
     Dates: start: 20120912, end: 20121009
  22. SORAFENIB [Suspect]
     Dosage: 800 MG, BID, ON DAYS 1-28 (CYCLE 3)
     Route: 065
     Dates: start: 20121011, end: 20121107
  23. NEUPOGEN [Suspect]
     Indication: ACUTE MYELOID LEUKAEMIA
     Dosage: 960 MCG, CYCLE 1
     Route: 058
     Dates: start: 20120813, end: 20120813
  24. NEUPOGEN [Suspect]
     Dosage: 960 MCG, CYCLE 1
     Route: 058
     Dates: start: 20120815, end: 20120815
  25. NEUPOGEN [Suspect]
     Dosage: 960 MCG, CYCLE 1
     Route: 058
     Dates: start: 20120817, end: 20120817
  26. NEUPOGEN [Suspect]
     Dosage: 960 MCG, CYCLE 1
     Route: 058
     Dates: start: 20120819, end: 20120819
  27. NEUPOGEN [Suspect]
     Dosage: 960 MCG, CYCLE 1
     Route: 058
     Dates: start: 20120821, end: 20120821
  28. NEUPOGEN [Suspect]
     Dosage: 960 MCG, CYCLE 1
     Route: 058
     Dates: start: 20120823, end: 20120823
  29. NEUPOGEN [Suspect]
     Dosage: 960 MCG, CYCLE 1
     Route: 058
     Dates: start: 20120825, end: 20120825
  30. NEUPOGEN [Suspect]
     Dosage: 780 MCG, QD, CYCLE 2
     Route: 058
     Dates: start: 20120912, end: 20120912
  31. NEUPOGEN [Suspect]
     Dosage: 780 MCG, QD, CYCLE 2
     Route: 058
     Dates: start: 20120914, end: 20120914
  32. NEUPOGEN [Suspect]
     Dosage: 780 MCG, QD, CYCLE 2
     Route: 058
     Dates: start: 20120916, end: 20120916
  33. NEUPOGEN [Suspect]
     Dosage: 780 MCG, QD, CYCLE 2
     Route: 058
     Dates: start: 20120918, end: 20120918
  34. NEUPOGEN [Suspect]
     Dosage: 780 MCG, QD, CYCLE 2
     Route: 058
     Dates: start: 20120920, end: 20120920
  35. NEUPOGEN [Suspect]
     Dosage: 780 MCG, QD, CYCLE 2
     Route: 058
     Dates: start: 20120922, end: 20120922
  36. NEUPOGEN [Suspect]
     Dosage: 780 MCG, QD, CYCLE 2
     Route: 058
     Dates: start: 20120924, end: 20120924
  37. NEUPOGEN [Suspect]
     Dosage: 780 MCG, QD, CYCLE 3
     Route: 058
     Dates: start: 20121011, end: 20121011
  38. NEUPOGEN [Suspect]
     Dosage: 780 MCG, QD, CYCLE 3
     Route: 058
     Dates: start: 20121013, end: 20121013
  39. NEUPOGEN [Suspect]
     Dosage: 780 MCG, QD, CYCLE 3
     Route: 058
     Dates: start: 20121015, end: 20121015
  40. NEUPOGEN [Suspect]
     Dosage: 780 MCG, QD, CYCLE 3
     Route: 058
     Dates: start: 20121017, end: 20121017
  41. NEUPOGEN [Suspect]
     Dosage: 780 MCG, QD, CYCLE 3
     Route: 058
     Dates: start: 20121019, end: 20121019
  42. BENZONATATE [Concomitant]
     Indication: PRODUCT USED FOR UNKNOWN INDICATION
     Dosage: UNK
     Route: 065
  43. CALTRATE [Concomitant]
     Indication: PRODUCT USED FOR UNKNOWN INDICATION
     Dosage: UNK
     Route: 065
  44. LEVOTHYROXINE [Concomitant]
     Indication: PRODUCT USED FOR UNKNOWN INDICATION
     Dosage: UNK
     Route: 065
  45. LEVIMIR [Concomitant]
     Indication: PRODUCT USED FOR UNKNOWN INDICATION
     Dosage: UNK
     Route: 065
  46. MAGNESIUM PROTEIN COMPLEX [Concomitant]
     Indication: PRODUCT USED FOR UNKNOWN INDICATION
     Dosage: UNK
     Route: 065
  47. CENTRUM SILVER [Concomitant]
     Indication: PRODUCT USED FOR UNKNOWN INDICATION
     Dosage: UNK
     Route: 065
  48. PANTOPRAZOLE [Concomitant]
     Indication: PRODUCT USED FOR UNKNOWN INDICATION
     Dosage: UNK
     Route: 065
  49. TAMULOSIN [Concomitant]
     Indication: PRODUCT USED FOR UNKNOWN INDICATION
     Dosage: UNK
     Route: 065
  50. VALACICLOVIR [Concomitant]
     Indication: PRODUCT USED FOR UNKNOWN INDICATION
     Dosage: UNK
     Route: 065

REACTIONS (8)
  - Hyperbilirubinaemia [Recovered/Resolved]
  - Pneumonia [Recovered/Resolved]
  - Acute myeloid leukaemia [Unknown]
  - Atrial fibrillation [Recovered/Resolved]
  - Left ventricular dysfunction [Not Recovered/Not Resolved]
  - Urinary tract infection enterococcal [Recovered/Resolved]
  - Muscular weakness [Recovered/Resolved]
  - Pneumonia [Recovered/Resolved]
